FAERS Safety Report 6327922-9 (Version None)
Quarter: 2009Q3

REPORT INFORMATION
  Report Type: 
  Country: None (occurrence: None)
  Receive Date: 20090825
  Receipt Date: 20080727
  Transmission Date: 20100115
  Serious: No
  Sender: FDA-Public Use
  Company Number: US-ABBOTT-08P-163-0465750-00

PATIENT
  Sex: Female
  Weight: 104.42 kg

DRUGS (6)
  1. SYNTHROID [Suspect]
     Indication: HYPOTHYROIDISM
     Route: 048
  2. SYNTHROID [Suspect]
     Dates: start: 19670101
  3. OLMESARTAN MEDOXOMIL [Concomitant]
     Indication: HYPERTENSION
     Route: 048
     Dates: start: 20080401
  4. PARACETAMOL [Concomitant]
     Indication: PAIN
     Route: 048
  5. NAPROXEN SODIUM [Concomitant]
     Indication: PAIN
     Route: 048
  6. ALUDROX [Concomitant]
     Indication: DYSPEPSIA
     Route: 048

REACTIONS (2)
  - DRY MOUTH [None]
  - PLATELET COUNT DECREASED [None]
